FAERS Safety Report 6985209-5 (Version None)
Quarter: 2010Q3

REPORT INFORMATION
  Report Type: 
  Country: None (occurrence: None)
  Receive Date: 20100915
  Receipt Date: 20100903
  Transmission Date: 20110219
  Serious: Yes (Other)
  Sender: FDA-Public Use
  Company Number: US-ROCHE-725728

PATIENT
  Sex: Female

DRUGS (3)
  1. PEGINTERFERON ALFA-2A [Suspect]
     Indication: HEPATITIS C
     Dosage: FORM: PRE-FILLED SYRINGE
     Route: 065
     Dates: start: 20100222
  2. RIBAVIRIN [Suspect]
     Indication: HEPATITIS C
     Route: 065
     Dates: start: 20100222
  3. RIBAVIRIN [Suspect]
     Dosage: DIVIDED DOSES, DOSE REDUCED
     Route: 065
     Dates: start: 20100701

REACTIONS (4)
  - ANAEMIA [None]
  - EAR PAIN [None]
  - HEPATIC CIRRHOSIS [None]
  - PAIN [None]
